FAERS Safety Report 13726526 (Version 3)
Quarter: 2017Q4

REPORT INFORMATION
  Report Type: Report from Study
  Country: US (occurrence: US)
  Receive Date: 20170707
  Receipt Date: 20171006
  Transmission Date: 20180320
  Serious: No
  Sender: FDA-Public Use
  Company Number: US-ASTRAZENECA-2017SE69879

PATIENT
  Sex: Female

DRUGS (1)
  1. BYDUREON [Suspect]
     Active Substance: EXENATIDE
     Route: 065

REACTIONS (6)
  - Product use issue [Unknown]
  - Product quality issue [Unknown]
  - Underdose [Unknown]
  - Device leakage [Unknown]
  - Blood glucose increased [Unknown]
  - Pain in extremity [Unknown]
